FAERS Safety Report 9465466 (Version 1)
Quarter: 2013Q3

REPORT INFORMATION
  Report Type: Spontaneous
  Country: US (occurrence: US)
  Receive Date: 20130820
  Receipt Date: 20130820
  Transmission Date: 20140515
  Serious: Yes (Other)
  Sender: FDA-Public Use
  Company Number: US-ASTRAZENECA-2013SE63473

PATIENT
  Sex: Male

DRUGS (7)
  1. TENORMIN [Suspect]
     Indication: SUPRAVENTRICULAR TACHYCARDIA
     Route: 065
  2. TENORMIN [Suspect]
     Indication: HYPERTENSION
     Route: 065
  3. METOPROLOL SUCCINATE [Suspect]
     Indication: SUPRAVENTRICULAR TACHYCARDIA
     Route: 048
  4. METOPROLOL SUCCINATE [Suspect]
     Indication: HYPERTENSION
     Route: 048
  5. METOPROLOL SUCCINATE [Suspect]
     Indication: SUPRAVENTRICULAR TACHYCARDIA
     Route: 048
  6. METOPROLOL SUCCINATE [Suspect]
     Indication: HYPERTENSION
     Route: 048
  7. DILTIAZEM CD [Concomitant]
     Indication: SUPRAVENTRICULAR TACHYCARDIA

REACTIONS (4)
  - Supraventricular tachycardia [Recovered/Resolved]
  - Heart rate increased [Recovered/Resolved]
  - Blood glucose increased [Unknown]
  - Drug ineffective [Recovered/Resolved]
